FAERS Safety Report 21350717 (Version 2)
Quarter: 2022Q3

REPORT INFORMATION
  Report Type: Spontaneous
  Country: US (occurrence: US)
  Receive Date: 20220919
  Receipt Date: 20220921
  Transmission Date: 20221027
  Serious: Yes (Hospitalization)
  Sender: FDA-Public Use
  Company Number: US-PFIZER INC-PV202200065193

PATIENT
  Age: 78 Year
  Sex: Female

DRUGS (2)
  1. INLYTA [Interacting]
     Active Substance: AXITINIB
     Dosage: UNK
  2. KEYTRUDA [Interacting]
     Active Substance: PEMBROLIZUMAB
     Dosage: UNK

REACTIONS (2)
  - Drug interaction [Unknown]
  - Psychotic disorder [Unknown]
